FAERS Safety Report 10168612 (Version 3)
Quarter: 2018Q2

REPORT INFORMATION
  Report Type: Report from Study
  Country: US (occurrence: US)
  Receive Date: 20140513
  Receipt Date: 20180410
  Transmission Date: 20180711
  Serious: Yes (Other)
  Sender: FDA-Public Use
  Company Number: US-ROCHE-1400011

PATIENT
  Age: 7 Year
  Sex: Male
  Weight: 32.5 kg

DRUGS (6)
  1. NUTROPIN AQ [Suspect]
     Active Substance: SOMATROPIN
     Indication: BODY HEIGHT BELOW NORMAL
     Route: 058
     Dates: start: 201005
  2. NUTROPIN AQ [Suspect]
     Active Substance: SOMATROPIN
     Route: 058
     Dates: start: 20131022, end: 20131022
  3. NUTROPIN AQ [Suspect]
     Active Substance: SOMATROPIN
     Route: 058
  4. NUTROPIN AQ [Suspect]
     Active Substance: SOMATROPIN
     Route: 058
  5. ARIMIDEX [Concomitant]
     Active Substance: ANASTROZOLE
     Route: 048
  6. NUTROPIN AQ [Suspect]
     Active Substance: SOMATROPIN
     Route: 058
     Dates: start: 20131022

REACTIONS (9)
  - Weight increased [Unknown]
  - Visual impairment [Unknown]
  - Basophil percentage increased [Unknown]
  - Acne [Unknown]
  - Haematocrit increased [Unknown]
  - Red cell distribution width decreased [Unknown]
  - Insulin-like growth factor increased [Unknown]
  - Haemoglobin increased [Unknown]
  - Mean platelet volume decreased [Unknown]

NARRATIVE: CASE EVENT DATE: 20130423
